FAERS Safety Report 5649145-9 (Version None)
Quarter: 2008Q1

REPORT INFORMATION
  Report Type: 
  Country: None (occurrence: None)
  Receive Date: 20080304
  Receipt Date: 20080226
  Transmission Date: 20080703
  Serious: Yes (Other)
  Sender: FDA-Public Use
  Company Number: US-ALLERGAN-0801375US

PATIENT
  Sex: Female

DRUGS (5)
  1. BOTOX COSMETIC [Suspect]
     Indication: SKIN WRINKLING
     Dosage: UNK, SINGLE
     Route: 030
     Dates: start: 20080205, end: 20080205
  2. HYLAFORM PLUS [Concomitant]
     Indication: SKIN WRINKLING
  3. ASPIRIN [Concomitant]
     Indication: ARRHYTHMIA
     Dosage: 81 MG, QD
     Route: 048
  4. PROPRANOLOL [Concomitant]
     Dosage: 40 MG, BID
  5. LIPITOR [Concomitant]

REACTIONS (6)
  - CONTUSION [None]
  - DEPRESSION [None]
  - EYE INJURY [None]
  - FACIAL PARESIS [None]
  - INJECTION SITE HAEMORRHAGE [None]
  - SWELLING FACE [None]
